FAERS Safety Report 9657317 (Version 1)
Quarter: 2013Q4

REPORT INFORMATION
  Report Type: Spontaneous
  Country: US (occurrence: US)
  Receive Date: 20131030
  Receipt Date: 20131030
  Transmission Date: 20140711
  Serious: Yes (Hospitalization)
  Sender: FDA-Public Use
  Company Number: US-GLAXOSMITHKLINE-A1046927A

PATIENT
  Sex: Female

DRUGS (1)
  1. ADVAIR [Suspect]
     Indication: ASTHMA
     Route: 055

REACTIONS (5)
  - Pulmonary congestion [Unknown]
  - Vascular graft [Unknown]
  - Lung disorder [Unknown]
  - Dyspnoea [Unknown]
  - Increased bronchial secretion [Unknown]
